FAERS Safety Report 13499076 (Version 1)
Quarter: 2017Q2

REPORT INFORMATION
  Report Type: Spontaneous
  Country: US (occurrence: US)
  Receive Date: 20170428
  Receipt Date: 20170428
  Transmission Date: 20170830
  Serious: No
  Sender: FDA-Public Use
  Company Number: None

PATIENT
  Age: 37 Year
  Sex: Female

DRUGS (1)
  1. PROGESTERON IN /SESAME OIL 50MG/ML FRESENIUS KABI USA, LLC [Suspect]
     Active Substance: PROGESTERONE
     Indication: PREGNANCY
     Dosage: 50MG (1ML)
     Route: 028
     Dates: start: 20170420, end: 20170428

REACTIONS (2)
  - Rash pruritic [None]
  - Rash [None]

NARRATIVE: CASE EVENT DATE: 20170422
